FAERS Safety Report 9700258 (Version 3)
Quarter: 2013Q4

REPORT INFORMATION
  Report Type: Spontaneous
  Country: IT (occurrence: None)
  Receive Date: 20131119
  Receipt Date: 20131216
  Transmission Date: 20140711
  Serious: Yes (Hospitalization)
  Sender: FDA-Public Use
  Company Number: AUR-APL-2013-09597

PATIENT
  Age: 41 Year
  Sex: Male

DRUGS (4)
  1. RAMIPRIL [Suspect]
     Indication: HYPERTENSION
     Dosage: (5 MG, 1 D)
     Route: 048
     Dates: start: 20131025, end: 20131027
  2. ENTUMIN (CLOTIAPINE) [Concomitant]
  3. TAVOR (LORAZEPAM) [Concomitant]
  4. METHADONE (METHADONE) [Concomitant]

REACTIONS (4)
  - Bronchospasm [None]
  - Dyspnoea [None]
  - Atelectasis [None]
  - Blood glucose increased [None]
